FAERS Safety Report 7053972-3 (Version None)
Quarter: 2010Q4

REPORT INFORMATION
  Report Type: 
  Country: None (occurrence: None)
  Receive Date: 20101020
  Receipt Date: 20101013
  Transmission Date: 20110411
  Serious: Yes (Other)
  Sender: FDA-Public Use
  Company Number: FR-GILEAD-2010-0032557

PATIENT
  Sex: Male

DRUGS (1)
  1. VIREAD [Suspect]
     Indication: HEPATITIS B
     Route: 048
     Dates: start: 20100315, end: 20100720

REACTIONS (4)
  - ASTHENIA [None]
  - BONE PAIN [None]
  - HYPOTENSION [None]
  - MUSCULAR WEAKNESS [None]
